FAERS Safety Report 23445003 (Version 1)
Quarter: 2024Q1

REPORT INFORMATION
  Report Type: Spontaneous
  Country: US (occurrence: US)
  Receive Date: 20240125
  Receipt Date: 20240125
  Transmission Date: 20240410
  Serious: Yes (Hospitalization)
  Sender: FDA-Public Use
  Company Number: US-BIOGEN-2024BI01246492

PATIENT
  Sex: Female

DRUGS (1)
  1. TYSABRI [Suspect]
     Active Substance: NATALIZUMAB
     Indication: Multiple sclerosis
     Route: 050
     Dates: start: 20221019

REACTIONS (7)
  - Pain in extremity [Unknown]
  - Chest pain [Unknown]
  - Costochondritis [Unknown]
  - Mass [Unknown]
  - Cardiac disorder [Unknown]
  - Neck mass [Unknown]
  - Dyspnoea [Unknown]
